FAERS Safety Report 5526192-9 (Version None)
Quarter: 2007Q4

REPORT INFORMATION
  Report Type: 
  Country: None (occurrence: None)
  Receive Date: 20071120
  Receipt Date: 20071105
  Transmission Date: 20080405
  Serious: Yes (Hospitalization)
  Sender: FDA-Public Use
  Company Number: 2007001982

PATIENT
  Age: 51 Year
  Sex: Male
  Weight: 62.7 kg

DRUGS (6)
  1. ERLOTINIB (ERLOTINIB HCL) (TABLET)(ERLOTINIB HCL) [Suspect]
     Indication: PANCREATIC CARCINOMA
     Dosage: (150 MG, QD), ORAL
     Route: 048
     Dates: start: 20070711, end: 20070824
  2. OXYCONTIN [Concomitant]
  3. OXYCODONE HCL [Concomitant]
  4. CREON [Concomitant]
  5. SENOKOT [Concomitant]
  6. COLACE (DOCUSATE SODIUM) [Concomitant]

REACTIONS (13)
  - ABSCESS [None]
  - ANURIA [None]
  - ATELECTASIS [None]
  - DILATATION INTRAHEPATIC DUCT ACQUIRED [None]
  - INTESTINAL PERFORATION [None]
  - METASTASES TO LIVER [None]
  - PELVIC PAIN [None]
  - PERITONITIS [None]
  - PLEURAL EFFUSION [None]
  - PNEUMOBILIA [None]
  - PSEUDOCYST [None]
  - RENAL FAILURE [None]
  - SPLENIC VEIN THROMBOSIS [None]
